FAERS Safety Report 9028388 (Version 1)
Quarter: 2013Q1

REPORT INFORMATION
  Report Type: Spontaneous
  Country: CN (occurrence: CN)
  Receive Date: 20130124
  Receipt Date: 20130124
  Transmission Date: 20140127
  Serious: Yes (Other)
  Sender: FDA-Public Use
  Company Number: CN-ASTELLAS-2013JP000377

PATIENT
  Age: 9 Year
  Sex: Female

DRUGS (3)
  1. PROTOPIC [Suspect]
     Indication: LIPODYSTROPHY ACQUIRED
     Dosage: 0.1 %, UNK
     Route: 061
     Dates: start: 201212
  2. SALVIA MILTIORRHIZA [Concomitant]
     Route: 048
  3. VITAMIN E                          /00110501/ [Concomitant]
     Route: 048

REACTIONS (2)
  - Off label use [Unknown]
  - Epilepsy [Recovering/Resolving]
